FAERS Safety Report 8837445 (Version 3)
Quarter: 2012Q4

REPORT INFORMATION
  Report Type: 
  Country: GB (occurrence: GB)
  Receive Date: 20121012
  Receipt Date: 20121109
  Transmission Date: 20130627
  Serious: Yes (Other)
  Sender: FDA-Public Use
  Company Number: PHFR2012GB005372

PATIENT
  Age: 38 Year
  Sex: Female

DRUGS (8)
  1. CARBAMAZEPINE [Suspect]
     Indication: BIPOLAR DISORDER
     Dosage: 400 mg, daily
  2. CARBAMAZEPINE [Suspect]
     Dosage: 200 mg, daily (200 mg every day)
  3. CARBAMAZEPINE [Suspect]
     Dosage: 400 mg, UNK
     Dates: start: 20121006, end: 201210
  4. QUETIAPINE [Concomitant]
     Dosage: 300 mg, UNK
     Route: 048
     Dates: start: 2011
  5. TOPIRAMATE [Concomitant]
     Dosage: 100 mg, UNK
     Route: 048
     Dates: start: 2011
  6. AMLODIPINE [Concomitant]
     Indication: BLOOD PRESSURE INCREASED
     Dosage: 5 mg, UNK
     Route: 048
     Dates: start: 2011
  7. ZOLMITRIPTAN [Concomitant]
     Indication: MIGRAINE
     Dosage: UNK UKN, prn
     Route: 048
  8. VENTOLIN [Concomitant]
     Dosage: UNK UKN, prn

REACTIONS (10)
  - Altered state of consciousness [Recovered/Resolved]
  - Lethargy [Recovered/Resolved]
  - Hypoaesthesia [Recovered/Resolved]
  - Feeling abnormal [Recovered/Resolved]
  - Sedation [Recovered/Resolved]
  - Nausea [Recovered/Resolved]
  - Confusional state [Recovered/Resolved]
  - Diarrhoea [Recovered/Resolved]
  - Dizziness [Recovered/Resolved]
  - Wrong technique in drug usage process [Recovered/Resolved]
